FAERS Safety Report 10885059 (Version 1)
Quarter: 2015Q1

REPORT INFORMATION
  Report Type: Spontaneous
  Country: US (occurrence: None)
  Receive Date: 20150227
  Receipt Date: 20150227
  Transmission Date: 20150721
  Serious: Yes (Life-Threatening, Hospitalization)
  Sender: FDA-Public Use
  Company Number: None

PATIENT
  Age: 65 Year
  Sex: Female
  Weight: 120.5 kg

DRUGS (3)
  1. CEFAZOLIN [Suspect]
     Active Substance: CEFAZOLIN
     Indication: POST PROCEDURAL INFECTION
     Route: 042
     Dates: start: 20130326, end: 20130326
  2. CEFAZOLIN [Suspect]
     Active Substance: CEFAZOLIN
     Indication: PROPHYLAXIS
     Route: 042
     Dates: start: 20130326, end: 20130326
  3. ROCURONIUM BROMIDE. [Suspect]
     Active Substance: ROCURONIUM BROMIDE
     Indication: SURGERY
     Dates: start: 20130326, end: 20130326

REACTIONS (4)
  - Procedural complication [None]
  - Hypoventilation [None]
  - Respiratory acidosis [None]
  - Anaphylactic reaction [None]

NARRATIVE: CASE EVENT DATE: 20130326
